FAERS Safety Report 4279569-6 (Version None)
Quarter: 2004Q1

REPORT INFORMATION
  Report Type: 
  Country: None (occurrence: None)
  Receive Date: 20040126
  Receipt Date: 20040126
  Transmission Date: 20041129
  Serious: Yes (Disabling)
  Sender: FDA-Public Use
  Company Number: None

PATIENT
  Age: 41 Year
  Sex: Female
  Weight: 51.2565 kg

DRUGS (3)
  1. PRED FORTE [Suspect]
     Dosage: 1 DROP BOTH EYES Q.I.D.
     Dates: start: 20030818, end: 20030825
  2. ECONOPRED PLUS [Suspect]
     Dosage: 1 DROP BOTH EYES Q.I.D.
     Dates: start: 20030808, end: 20030815
  3. VIGAMOX [Concomitant]

REACTIONS (3)
  - EYE OPERATION COMPLICATION [None]
  - LACRIMAL DISORDER [None]
  - VISUAL DISTURBANCE [None]
